FAERS Safety Report 21847258 (Version 4)
Quarter: 2023Q1

REPORT INFORMATION
  Report Type: Report from Study
  Country: CH (occurrence: CH)
  Receive Date: 20230111
  Receipt Date: 20230301
  Transmission Date: 20230418
  Serious: Yes (Hospitalization)
  Sender: FDA-Public Use
  Company Number: CH-ABBVIE-4263478

PATIENT
  Age: 76 Year
  Sex: Male

DRUGS (5)
  1. CARBIDOPA\LEVODOPA [Suspect]
     Active Substance: CARBIDOPA\LEVODOPA
     Indication: Parkinson^s disease
     Dosage: FREQUENCY TEXT: 16H THERAPY
     Route: 050
     Dates: start: 20230106
  2. CARBIDOPA\LEVODOPA [Suspect]
     Active Substance: CARBIDOPA\LEVODOPA
     Route: 050
     Dates: start: 20150813
  3. CARBIDOPA\LEVODOPA [Suspect]
     Active Substance: CARBIDOPA\LEVODOPA
     Dosage: MD 6.4 ML, CRD 3.6 ML/H, ED 2.5ML, FREQUENCY TEXT: 16H THERAPY
     Route: 050
     Dates: start: 20220524
  4. CARBIDOPA\LEVODOPA [Suspect]
     Active Substance: CARBIDOPA\LEVODOPA
     Dosage: MD 6.4 ML, CRD 3.8 ML/H, ED 2.5ML,FREQUENCY TEXT: 16H THERAPY
     Route: 050
     Dates: start: 20220512, end: 20220524
  5. CARBIDOPA\LEVODOPA [Suspect]
     Active Substance: CARBIDOPA\LEVODOPA
     Dosage: MD 6.4 ML, CRD 3.6 ML/H, ED 2.5ML, FREQUENCY TEXT: 16H THERAPY
     Route: 050
     Dates: start: 20220512, end: 20220512

REACTIONS (8)
  - COVID-19 [Recovered/Resolved]
  - Asthenia [Not Recovered/Not Resolved]
  - Hernia [Not Recovered/Not Resolved]
  - Gait disturbance [Unknown]
  - Stoma complication [Recovering/Resolving]
  - Stoma site discharge [Recovering/Resolving]
  - Fall [Not Recovered/Not Resolved]
  - Stoma site erythema [Recovering/Resolving]

NARRATIVE: CASE EVENT DATE: 20221202
